FAERS Safety Report 9720975 (Version 2)
Quarter: 2013Q4

REPORT INFORMATION
  Report Type: Report from Study
  Country: US (occurrence: US)
  Receive Date: 20131129
  Receipt Date: 20131129
  Transmission Date: 20140711
  Serious: Yes (Other)
  Sender: FDA-Public Use
  Company Number: US-ACTELION-A-NJ2007-17031

PATIENT
  Age: 66 Year
  Sex: Female

DRUGS (3)
  1. TRACLEER [Suspect]
     Indication: PULMONARY HYPERTENSION
     Route: 048
     Dates: start: 20050513
  2. CYTOXAN [Suspect]
  3. SILDENAFIL [Concomitant]

REACTIONS (4)
  - Blood product transfusion [Unknown]
  - Transfusion [Unknown]
  - Presyncope [Unknown]
  - Anaemia [Unknown]
